FAERS Safety Report 18439945 (Version 1)
Quarter: 2020Q4

REPORT INFORMATION
  Report Type: Report from Study
  Country: SI (occurrence: SI)
  Receive Date: 20201029
  Receipt Date: 20201029
  Transmission Date: 20210114
  Serious: Yes (Other)
  Sender: FDA-Public Use
  Company Number: SI-TAKEDA-2020TUS045135

PATIENT
  Age: 60 Year
  Sex: Female

DRUGS (5)
  1. MEDROL SPECIFIC [Concomitant]
     Dosage: UNK
  2. NOLPAZA [Concomitant]
     Active Substance: PANTOPRAZOLE SODIUM
     Dosage: 40 MILLIGRAM
  3. VEDOLIZUMAB [Suspect]
     Active Substance: VEDOLIZUMAB
     Indication: CROHN^S DISEASE
     Dosage: 300 MILLIGRAM, Q4WEEKS
     Route: 042
     Dates: start: 20191209
  4. OLEOVIT A [Concomitant]
     Dosage: UNK UNK, QD
  5. CALCIUM CARBONATE. [Concomitant]
     Active Substance: CALCIUM CARBONATE
     Dosage: 1 MILLIGRAM

REACTIONS (2)
  - Crohn^s disease [Unknown]
  - Cytomegalovirus gastrointestinal infection [Unknown]
